FAERS Safety Report 25666135 (Version 2)
Quarter: 2025Q3

REPORT INFORMATION
  Report Type: Spontaneous
  Country: US (occurrence: US)
  Receive Date: 20250811
  Receipt Date: 20250820
  Transmission Date: 20251021
  Serious: No
  Sender: ABBVIE
  Company Number: US-ABBVIE-6409575

PATIENT
  Age: 22 Year
  Sex: Female
  Weight: 44.905 kg

DRUGS (5)
  1. HUMIRA [Suspect]
     Active Substance: ADALIMUMAB
     Indication: Crohn^s disease
     Route: 058
     Dates: start: 202308
  2. XANAX [Concomitant]
     Active Substance: ALPRAZOLAM
     Indication: Anxiety
  3. SERTRALINE [Concomitant]
     Active Substance: SERTRALINE HYDROCHLORIDE
     Indication: Depression
  4. VITAMIN D [Concomitant]
     Active Substance: VITAMIN D NOS
     Indication: Vitamin supplementation
  5. IRON [Concomitant]
     Active Substance: IRON
     Indication: Mineral supplementation

REACTIONS (3)
  - Hypersomnia [Not Recovered/Not Resolved]
  - Injection site pruritus [Unknown]
  - Injection site papule [Unknown]

NARRATIVE: CASE EVENT DATE: 20250101
